FAERS Safety Report 21212042 (Version 7)
Quarter: 2024Q4

REPORT INFORMATION
  Report Type: Spontaneous
  Country: US (occurrence: US)
  Receive Date: 20220815
  Receipt Date: 20241126
  Transmission Date: 20250115
  Serious: Yes (Hospitalization, Other)
  Sender: PFIZER
  Company Number: US-PFIZER INC-2021078219

PATIENT
  Age: 82 Year
  Sex: Female
  Weight: 85.73 kg

DRUGS (13)
  1. TIKOSYN [Suspect]
     Active Substance: DOFETILIDE
     Indication: Cardiac disorder
     Dosage: 0.125 MG, 2X/DAY (0.125 MG; ONE CAPSULE BY MOUTH TWICE A DAY)
     Route: 048
  2. TIKOSYN [Suspect]
     Active Substance: DOFETILIDE
     Indication: Cardiac fibrillation
     Dosage: UNK
  3. TIKOSYN [Suspect]
     Active Substance: DOFETILIDE
     Indication: Atrial fibrillation
     Dosage: TAKE 1 CAPSULE BY MOUTH EVERY 12 HOURS.
     Route: 048
  4. TIKOSYN [Suspect]
     Active Substance: DOFETILIDE
     Dosage: 0.125 MG (QUANTITY FOR 90 DAYS:180 CAPS)
  5. PRADAXA [Concomitant]
     Active Substance: DABIGATRAN ETEXILATE MESYLATE
     Dosage: 150 MG
  6. FAMOTIDINE [Concomitant]
     Active Substance: FAMOTIDINE
     Dosage: 20 MG
  7. FUROSEMIDE [Concomitant]
     Active Substance: FUROSEMIDE
     Dosage: 40 MG
  8. ATORVASTATIN [Concomitant]
     Active Substance: ATORVASTATIN
     Dosage: 20 MG
  9. POTASSIUM CHLORIDE [Concomitant]
     Active Substance: POTASSIUM CHLORIDE
     Dosage: 20 MG
  10. LOSARTAN [Concomitant]
     Active Substance: LOSARTAN
     Dosage: 20 MG
  11. PANTOPRAZOLE [Concomitant]
     Active Substance: PANTOPRAZOLE
     Dosage: UNK
  12. METOPROLOL [Concomitant]
     Active Substance: METOPROLOL
     Dosage: 25 MG
  13. NORVASC [Concomitant]
     Active Substance: AMLODIPINE BESYLATE
     Dosage: 1 TABLET TWO TIMES A DAY
     Route: 048

REACTIONS (4)
  - Knee arthroplasty [Unknown]
  - Product dispensing error [Unknown]
  - Weight decreased [Unknown]
  - Decreased appetite [Unknown]
